FAERS Safety Report 14074203 (Version 22)
Quarter: 2022Q4

REPORT INFORMATION
  Report Type: Report from Study
  Country: TR (occurrence: None)
  Receive Date: 20171011
  Receipt Date: 20221118
  Transmission Date: 20230113
  Serious: Yes (Life-Threatening, Hospitalization, Other)
  Sender: FDA-Public Use
  Company Number: TR-ROCHE-1938068

PATIENT
  Age: 59 Year
  Sex: Male
  Weight: 58 kg

DRUGS (14)
  1. ATEZOLIZUMAB [Suspect]
     Active Substance: ATEZOLIZUMAB
     Indication: Transitional cell carcinoma metastatic
     Dosage: DATE OF MOST RECENT DOSE PRIOR TO SAE: 04/MAY/2017
     Route: 042
     Dates: start: 20170504
  2. GEMCITABINE [Suspect]
     Active Substance: GEMCITABINE
     Indication: Transitional cell carcinoma metastatic
     Dosage: DATE OF MOST RECENT DOSE PRIOR TO SAE (1800MG/M2): 11/MAY/2017?DATE OF MOST RECENT DOSE PRIOR TO SAE
     Route: 042
     Dates: start: 20170504
  3. CARBOPLATIN [Suspect]
     Active Substance: CARBOPLATIN
     Indication: Transitional cell carcinoma metastatic
     Dosage: DOSE: AUC: 4.5 MG/MLXMIN?DATE OF MOST RECENT DOSE PRIOR TO SAE (332MG): 04/MAY/2017?DATE OF MOST REC
     Route: 042
     Dates: start: 20170504
  4. MORFIA [Concomitant]
     Indication: Bone pain
     Route: 048
     Dates: start: 20170413, end: 20170609
  5. ACETAMINOPHEN\CAFFEINE\CODEINE PHOSPHATE [Concomitant]
     Active Substance: ACETAMINOPHEN\CAFFEINE\CODEINE PHOSPHATE
     Indication: Bone pain
     Route: 048
     Dates: start: 20170413, end: 20170521
  6. ACETAMINOPHEN\CAFFEINE\CODEINE PHOSPHATE [Concomitant]
     Active Substance: ACETAMINOPHEN\CAFFEINE\CODEINE PHOSPHATE
     Indication: Pain
     Route: 048
     Dates: start: 20170522, end: 20170609
  7. PIPERACILLIN SODIUM\TAZOBACTAM SODIUM [Concomitant]
     Active Substance: PIPERACILLIN SODIUM\TAZOBACTAM SODIUM
     Indication: Urinary tract infection
     Route: 042
     Dates: start: 20170526, end: 20170609
  8. VITAMIN D3 [Concomitant]
     Active Substance: CHOLECALCIFEROL
     Indication: Iron deficiency
     Route: 048
     Dates: start: 20170609, end: 20170914
  9. TARGOSID [Concomitant]
     Active Substance: TEICOPLANIN
     Indication: Urinary tract infection
     Route: 042
     Dates: start: 20170602, end: 20170609
  10. PANTO (TURKEY) [Concomitant]
     Route: 048
     Dates: start: 20170413, end: 20170914
  11. KYTRIL [Concomitant]
     Active Substance: GRANISETRON HYDROCHLORIDE
     Indication: Premedication
     Dosage: 1 AMPULE
     Dates: start: 20170511, end: 20170511
  12. KYTRIL [Concomitant]
     Active Substance: GRANISETRON HYDROCHLORIDE
     Dosage: 1 AMPULE
     Route: 042
     Dates: start: 20170504, end: 20170504
  13. DEKORT [Concomitant]
     Active Substance: DEXAMETHASONE
     Indication: Premedication
     Route: 042
     Dates: start: 20170504, end: 20170504
  14. DEKORT [Concomitant]
     Active Substance: DEXAMETHASONE
     Route: 042
     Dates: start: 20170511, end: 20170511

REACTIONS (6)
  - Acute coronary syndrome [Recovered/Resolved]
  - Encephalitis [Recovered/Resolved]
  - Adrenal insufficiency [Recovered/Resolved]
  - Thrombocytopenia [Recovered/Resolved]
  - Neutropenia [Recovered/Resolved]
  - Atrial fibrillation [Recovered/Resolved]

NARRATIVE: CASE EVENT DATE: 20170510
